FAERS Safety Report 5407760-1 (Version None)
Quarter: 2007Q3

REPORT INFORMATION
  Report Type: 
  Country: None (occurrence: None)
  Receive Date: 20070807
  Receipt Date: 20070726
  Transmission Date: 20080115
  Serious: Yes (Other)
  Sender: FDA-Public Use
  Company Number: US-PFIZER INC-2007062329

PATIENT
  Sex: Male
  Weight: 71.7 kg

DRUGS (7)
  1. ZOLOFT [Suspect]
  2. CHANTIX [Suspect]
     Indication: SMOKING CESSATION THERAPY
  3. DIAZEPAM [Suspect]
  4. CELEXA [Suspect]
  5. KLONOPIN [Suspect]
  6. SIMVASTATIN [Concomitant]
  7. LEVAQUIN [Concomitant]

REACTIONS (14)
  - ANEURYSM [None]
  - CHEST PAIN [None]
  - COUGH [None]
  - DEPENDENCE [None]
  - DIZZINESS [None]
  - DRUG INEFFECTIVE [None]
  - DRUG WITHDRAWAL SYNDROME [None]
  - EMOTIONAL DISORDER [None]
  - FATIGUE [None]
  - FEELING ABNORMAL [None]
  - INFECTION [None]
  - MALAISE [None]
  - NEPHROLITHIASIS [None]
  - PROSTATE EXAMINATION ABNORMAL [None]
